FAERS Safety Report 23951924 (Version 1)
Quarter: 2024Q2

REPORT INFORMATION
  Report Type: Spontaneous
  Country: CA (occurrence: CA)
  Receive Date: 20240607
  Receipt Date: 20240607
  Transmission Date: 20240715
  Serious: Yes (Other)
  Sender: FDA-Public Use
  Company Number: CA-009507513-2406CAN001840

PATIENT
  Age: 46 Year
  Sex: Female

DRUGS (2)
  1. KEYTRUDA [Suspect]
     Active Substance: PEMBROLIZUMAB
     Indication: Neoplasm malignant
     Dosage: 200.0 MILLIGRAM, 1 EVERY 3 WEEKS
     Route: 042
  2. POLYETHYLENE GLYCOL 3350 [Concomitant]
     Active Substance: POLYETHYLENE GLYCOL 3350
     Dosage: DOSAGE FORM: POWDER FOR SOLUTION ORAL
     Route: 065

REACTIONS (2)
  - Device issue [Recovered/Resolved]
  - Pleural effusion [Recovered/Resolved]
